FAERS Safety Report 4569969-9 (Version None)
Quarter: 2005Q1

REPORT INFORMATION
  Report Type: 
  Country: None (occurrence: None)
  Receive Date: 20050204
  Receipt Date: 20050125
  Transmission Date: 20050727
  Serious: Yes (Death)
  Sender: FDA-Public Use
  Company Number: 200510604US

PATIENT
  Sex: Female

DRUGS (3)
  1. TAXOTERE [Suspect]
     Indication: BREAST CANCER
     Dates: start: 20041001, end: 20050101
  2. ADRIAMYCIN PFS [Concomitant]
     Dosage: DOSE: UNK
  3. CYCLOPHOSPHAMIDE [Concomitant]
     Dosage: DOSE: UNK

REACTIONS (5)
  - DEHYDRATION [None]
  - DERMATITIS BULLOUS [None]
  - DIARRHOEA [None]
  - PNEUMONITIS [None]
  - PULMONARY OEDEMA [None]
